FAERS Safety Report 4939285-1 (Version None)
Quarter: 2006Q1

REPORT INFORMATION
  Report Type: 
  Country: None (occurrence: None)
  Receive Date: 20060310
  Receipt Date: 20060123
  Transmission Date: 20060701
  Serious: Yes (Other)
  Sender: FDA-Public Use
  Company Number: US-AMGEN-KDL166372

PATIENT
  Sex: Female
  Weight: 59.9 kg

DRUGS (2)
  1. PROCRIT [Suspect]
     Indication: ANAEMIA OF MALIGNANT DISEASE
     Route: 058
     Dates: start: 20040817, end: 20050630
  2. PREDNISONE [Concomitant]
     Dates: start: 20051112

REACTIONS (5)
  - APLASIA PURE RED CELL [None]
  - GRAFT VERSUS HOST DISEASE [None]
  - MEDIASTINAL MASS [None]
  - PRECURSOR T-LYMPHOBLASTIC LYMPHOMA/LEUKAEMIA RECURRENT [None]
  - THERAPEUTIC RESPONSE DECREASED [None]
